FAERS Safety Report 22005146 (Version 1)
Quarter: 2023Q1

REPORT INFORMATION
  Report Type: Report from Study
  Country: US (occurrence: US)
  Receive Date: 20230217
  Receipt Date: 20230217
  Transmission Date: 20230417
  Serious: Yes (Other)
  Sender: FDA-Public Use
  Company Number: US-MYLANLABS-2023M1017060

PATIENT
  Age: 46 Year
  Sex: Male

DRUGS (3)
  1. FLUOROURACIL [Suspect]
     Active Substance: FLUOROURACIL
     Indication: Colorectal cancer metastatic
     Dosage: 400 MILLIGRAM/SQ. METER, ON DAY 1
     Route: 042
  2. FLUOROURACIL [Suspect]
     Active Substance: FLUOROURACIL
     Dosage: 2400 MILLIGRAM/SQ. METER, ON DAY 2
     Route: 042
  3. REGORAFENIB [Suspect]
     Active Substance: REGORAFENIB
     Indication: Colorectal cancer metastatic
     Dosage: 120 MILLIGRAM
     Route: 065

REACTIONS (1)
  - Drug ineffective [Unknown]
